APPROVED DRUG PRODUCT: DEXTROAMPHETAMINE SULFATE
Active Ingredient: DEXTROAMPHETAMINE SULFATE
Strength: 2.5MG
Dosage Form/Route: TABLET;ORAL
Application: A090533 | Product #001 | TE Code: AA
Applicant: AZURITY PHARMACEUTICALS INC
Approved: Oct 25, 2011 | RLD: No | RS: No | Type: RX